FAERS Safety Report 7530512-3 (Version None)
Quarter: 2011Q2

REPORT INFORMATION
  Report Type: 
  Country: None (occurrence: None)
  Receive Date: 20110607
  Receipt Date: 20110524
  Transmission Date: 20111010
  Serious: No
  Sender: FDA-Public Use
  Company Number: US-B.I. PHARMACEUTICALS,INC./RIDGEFIELD-2011-BP-10584BP

PATIENT
  Sex: Male

DRUGS (4)
  1. PRADAXA [Suspect]
     Indication: ANTICOAGULANT THERAPY
     Dosage: 300 MG
  2. ZOCOR [Concomitant]
  3. SOTALOL HCL [Concomitant]
  4. ASPIRIN [Concomitant]

REACTIONS (2)
  - ERUCTATION [None]
  - DYSPEPSIA [None]
